FAERS Safety Report 4429795-8 (Version None)
Quarter: 2004Q3

REPORT INFORMATION
  Report Type: 
  Country: None (occurrence: None)
  Receive Date: 20040817
  Receipt Date: 20040817
  Transmission Date: 20050211
  Serious: No
  Sender: FDA-Public Use
  Company Number: None

PATIENT
  Age: 37 Year
  Sex: Female

DRUGS (3)
  1. CYTOMEL [Suspect]
     Indication: AUTOIMMUNE THYROIDITIS
     Dosage: 1 TWICE A DAY BY MOUTH
     Route: 048
     Dates: start: 20040401, end: 20040701
  2. SYNTHROID [Concomitant]
  3. MIRCETTE [Concomitant]

REACTIONS (3)
  - HEART RATE DECREASED [None]
  - IRRITABILITY [None]
  - PHARMACEUTICAL PRODUCT COMPLAINT [None]
